FAERS Safety Report 25185319 (Version 1)
Quarter: 2025Q2

REPORT INFORMATION
  Report Type: Spontaneous
  Country: US (occurrence: US)
  Receive Date: 20250410
  Receipt Date: 20250410
  Transmission Date: 20250716
  Serious: No
  Sender: HISAMITSU PHARM
  Company Number: US-HISAMITSU-2024-US-027374

PATIENT
  Age: 87 Year
  Sex: Male
  Weight: 102.06 kg

DRUGS (9)
  1. LATANOPROST [Concomitant]
     Active Substance: LATANOPROST
  2. VITAMIN D [Concomitant]
     Active Substance: VITAMIN D NOS
  3. FINASTERIDE [Concomitant]
     Active Substance: FINASTERIDE
  4. TRIAMTERENE [Concomitant]
     Active Substance: TRIAMTERENE
  5. AMLODIPINE [Concomitant]
     Active Substance: AMLODIPINE BESYLATE
  6. LIPITOR [Concomitant]
     Active Substance: ATORVASTATIN CALCIUM
  7. ALBUTEROL [Concomitant]
     Active Substance: ALBUTEROL
  8. fluticasone nasal inhaler [Concomitant]
  9. SALONPAS PAIN RELIEF [Suspect]
     Active Substance: MENTHOL\METHYL SALICYLATE
     Indication: Analgesic therapy
     Route: 061
     Dates: start: 202405

REACTIONS (4)
  - Pollakiuria [Unknown]
  - Dysuria [Unknown]
  - Micturition urgency [Unknown]
  - Haematuria [Unknown]

NARRATIVE: CASE EVENT DATE: 20240501
